FAERS Safety Report 21210831 (Version 3)
Quarter: 2022Q4

REPORT INFORMATION
  Report Type: Spontaneous
  Country: US (occurrence: US)
  Receive Date: 20220815
  Receipt Date: 20221205
  Transmission Date: 20230113
  Serious: Yes (Hospitalization)
  Sender: FDA-Public Use
  Company Number: US-BRISTOL-MYERS SQUIBB COMPANY-2022-089051

PATIENT
  Age: 79 Year
  Sex: Female
  Weight: 66.678 kg

DRUGS (2)
  1. REVLIMID [Suspect]
     Active Substance: LENALIDOMIDE
     Indication: Myelodysplastic syndrome
     Route: 048
     Dates: start: 20220401
  2. REVLIMID [Suspect]
     Active Substance: LENALIDOMIDE
     Route: 048
     Dates: start: 20220415

REACTIONS (3)
  - Heart rate irregular [Recovered/Resolved]
  - Oedema peripheral [Unknown]
  - Thyroid mass [Unknown]

NARRATIVE: CASE EVENT DATE: 20220825
